FAERS Safety Report 6290538-7 (Version None)
Quarter: 2009Q3

REPORT INFORMATION
  Report Type: 
  Country: None (occurrence: None)
  Receive Date: 20090730
  Receipt Date: 20090616
  Transmission Date: 20100115
  Serious: No
  Sender: FDA-Public Use
  Company Number: US-BRISTOL-MYERS SQUIBB COMPANY-14571442

PATIENT
  Age: 56 Year
  Sex: Male
  Weight: 111 kg

DRUGS (4)
  1. COUMADIN [Suspect]
     Indication: ANTITHROMBIN III DEFICIENCY
     Dosage: STARTED SINCE 20S.FIVE YEARS AGO COUMADIN WAS DISCONTINUED.
  2. HALDOL [Concomitant]
  3. METOPROLOL TARTRATE [Concomitant]
  4. GEMFIBROZIL [Concomitant]

REACTIONS (2)
  - ABDOMINAL PAIN UPPER [None]
  - HYPOAESTHESIA FACIAL [None]
